FAERS Safety Report 22598581 (Version 1)
Quarter: 2023Q2

REPORT INFORMATION
  Report Type: Report from Study
  Country: US (occurrence: US)
  Receive Date: 20230614
  Receipt Date: 20230614
  Transmission Date: 20230721
  Serious: Yes (Other)
  Sender: FDA-Public Use
  Company Number: US-ABBVIE-4717871

PATIENT
  Age: 42 Year
  Sex: Male

DRUGS (3)
  1. HUMIRA [Suspect]
     Active Substance: ADALIMUMAB
     Indication: Crohn^s disease
     Route: 058
     Dates: start: 20221025, end: 202304
  2. HUMIRA [Suspect]
     Active Substance: ADALIMUMAB
     Indication: Colitis ulcerative
     Route: 058
     Dates: start: 2023
  3. HUMIRA [Suspect]
     Active Substance: ADALIMUMAB
     Route: 058

REACTIONS (6)
  - Muscle rupture [Not Recovered/Not Resolved]
  - Upper limb fracture [Recovering/Resolving]
  - Fall [Not Recovered/Not Resolved]
  - Erythema [Recovered/Resolved]
  - Blood blister [Unknown]
  - Contusion [Unknown]

NARRATIVE: CASE EVENT DATE: 20230301
